FAERS Safety Report 19593165 (Version 2)
Quarter: 2021Q3

REPORT INFORMATION
  Report Type: Spontaneous
  Country: AR (occurrence: AR)
  Receive Date: 20210722
  Receipt Date: 20210804
  Transmission Date: 20211014
  Serious: Yes (Other)
  Sender: FDA-Public Use
  Company Number: NVSC2021AR160137

PATIENT
  Sex: Female

DRUGS (4)
  1. TRAVATAN [Suspect]
     Active Substance: TRAVOPROST
     Indication: GLAUCOMA
     Dosage: 2.5 ML (1X2.5 ML) AT NIGHT ON THE RIGHT EYE
     Route: 047
     Dates: start: 2010
  2. TRUSOPT [Suspect]
     Active Substance: DORZOLAMIDE HYDROCHLORIDE
     Indication: PRODUCT USED FOR UNKNOWN INDICATION
     Dosage: UNK
     Route: 065
  3. AZOPT [Suspect]
     Active Substance: BRINZOLAMIDE
     Indication: GLAUCOMA
     Dosage: 10 (2 X 5 ML ON THE RIGHT EYE) ML, QD (STOP DATE: 2 MONTHS AGO)
     Route: 047
     Dates: start: 2010
  4. DAFLON [Concomitant]
     Indication: PRODUCT USED FOR UNKNOWN INDICATION
     Dosage: 500 MG, QD
     Route: 065

REACTIONS (7)
  - Ocular hyperaemia [Recovered/Resolved]
  - Lacrimal disorder [Unknown]
  - Fear [Unknown]
  - Cataract [Recovered/Resolved]
  - Foreign body sensation in eyes [Recovered/Resolved]
  - Lacrimation increased [Unknown]
  - Eye pruritus [Unknown]
